FAERS Safety Report 17584783 (Version 1)
Quarter: 2020Q1

REPORT INFORMATION
  Report Type: Spontaneous
  Country: US (occurrence: US)
  Receive Date: 20200326
  Receipt Date: 20200326
  Transmission Date: 20200409
  Serious: Yes (Other)
  Sender: FDA-Public Use
  Company Number: US-STRIDES ARCOLAB LIMITED-2020SP003900

PATIENT
  Age: 62 Year
  Sex: Female

DRUGS (12)
  1. MARIJUANA [Concomitant]
     Active Substance: CANNABIS SATIVA SUBSP. INDICA TOP
     Indication: BACK PAIN
     Dosage: UNK
     Route: 065
  2. COCAINE [Concomitant]
     Active Substance: COCAINE
     Indication: OSTEOARTHRITIS
  3. IBUPROFEN. [Suspect]
     Active Substance: IBUPROFEN
     Indication: BACK PAIN
     Dosage: 200-400 MG, PRN
     Route: 065
  4. TRAMADOL. [Interacting]
     Active Substance: TRAMADOL
     Indication: BACK PAIN
     Dosage: 50 MILLIGRAM, EVERY 8 HOURS, ALTERNATELY TREATED WITH HYDROCODONE/ACETAMINOPHEN
     Route: 065
  5. TRAMADOL. [Interacting]
     Active Substance: TRAMADOL
     Indication: OSTEOARTHRITIS
  6. HYDROCODONE/ACETAMINOPHEN [Interacting]
     Active Substance: ACETAMINOPHEN\HYDROCODONE
     Indication: OSTEOARTHRITIS
  7. MARIJUANA [Concomitant]
     Active Substance: CANNABIS SATIVA SUBSP. INDICA TOP
     Indication: OSTEOARTHRITIS
  8. IBUPROFEN. [Interacting]
     Active Substance: IBUPROFEN
     Indication: OSTEOARTHRITIS
     Dosage: 600 MILLIGRAM, EVERY 6 HRS
     Route: 065
  9. HYDROCODONE/ACETAMINOPHEN [Interacting]
     Active Substance: ACETAMINOPHEN\HYDROCODONE
     Indication: BACK PAIN
     Dosage: 5-325 MG EVERY 6 HRS AS NEEDED, ALTERNATELY TREATED WITH TRAMADOL
     Route: 065
  10. COCAINE [Concomitant]
     Active Substance: COCAINE
     Indication: BACK PAIN
     Dosage: UNK
     Route: 065
  11. FLUOXETINE [Interacting]
     Active Substance: FLUOXETINE HYDROCHLORIDE
     Dosage: 60 MILLIGRAM DAILY
     Route: 065
  12. FLUOXETINE [Interacting]
     Active Substance: FLUOXETINE HYDROCHLORIDE
     Indication: DEPRESSION
     Dosage: 20 MILLIGRAM DAILY
     Route: 065

REACTIONS (4)
  - Dizziness [Unknown]
  - Chronic kidney disease [Unknown]
  - Drug interaction [Unknown]
  - Agitation [Unknown]
